FAERS Safety Report 4518967-X (Version None)
Quarter: 2004Q4

REPORT INFORMATION
  Report Type: 
  Country: None (occurrence: None)
  Receive Date: 20041203
  Receipt Date: 20041203
  Transmission Date: 20050328
  Serious: Yes (Other)
  Sender: FDA-Public Use
  Company Number: None

PATIENT
  Age: 57 Year
  Sex: Female

DRUGS (3)
  1. ALTOCOR  ANDRX [Suspect]
     Dates: start: 20040401, end: 20040407
  2. SEROQUEL [Concomitant]
  3. XANAX [Concomitant]

REACTIONS (4)
  - CRYING [None]
  - EUPHORIC MOOD [None]
  - NERVOUS SYSTEM DISORDER [None]
  - TIC [None]
